FAERS Safety Report 12497976 (Version 1)
Quarter: 2016Q2

REPORT INFORMATION
  Report Type: Spontaneous
  Country: IT (occurrence: IT)
  Receive Date: 20160626
  Receipt Date: 20160626
  Transmission Date: 20160815
  Serious: Yes (Other)
  Sender: FDA-Public Use
  Company Number: IT-TEVA-669290ISR

PATIENT
  Sex: Female

DRUGS (9)
  1. RAMIPRIL. [Suspect]
     Active Substance: RAMIPRIL
     Route: 064
  2. CYCLOPHOSPHAMIDE. [Suspect]
     Active Substance: CYCLOPHOSPHAMIDE
     Dosage: 3 MG/KG DAILY;
     Route: 064
  3. GRANULOCYTE-MACROPHAGE COLONY STIMULATING FACTOR [Suspect]
     Active Substance: GRANULOCYTE-MACROPHAGE COLONY-STIMULATING FACTOR
  4. PREDNISONE. [Suspect]
     Active Substance: PREDNISONE
     Dosage: 10 MG/KG DAILY;
     Route: 064
  5. LANSOPRAZOLE. [Suspect]
     Active Substance: LANSOPRAZOLE
     Route: 064
  6. ERYTHROPOIETIN [Suspect]
     Active Substance: ERYTHROPOIETIN
     Route: 064
  7. FUROSEMIDE. [Suspect]
     Active Substance: FUROSEMIDE
     Route: 064
  8. METHYLPREDNISOLONE. [Suspect]
     Active Substance: METHYLPREDNISOLONE
     Dosage: FOR 3 CONSECUTIVE DAYS
     Route: 064
  9. PREDNISONE. [Suspect]
     Active Substance: PREDNISONE
     Route: 064

REACTIONS (3)
  - Foetal exposure during delivery [Unknown]
  - Low birth weight baby [Unknown]
  - Premature baby [Unknown]
